FAERS Safety Report 8052931-1 (Version None)
Quarter: 2012Q1

REPORT INFORMATION
  Report Type: 
  Country: None (occurrence: None)
  Receive Date: 20120118
  Receipt Date: 20120111
  Transmission Date: 20120608
  Serious: Yes (Other)
  Sender: FDA-Public Use
  Company Number: IT-SANOFI-AVENTIS-2012SA001936

PATIENT
  Age: 77 Year
  Sex: Female

DRUGS (11)
  1. DOXAZOSIN MESYLATE [Suspect]
     Route: 048
     Dates: start: 20090101, end: 20111118
  2. EN [Concomitant]
     Indication: ANXIETY
     Route: 065
  3. LASIX [Suspect]
     Route: 048
     Dates: start: 20090101, end: 20111118
  4. AMLODIPINE BESYLATE [Suspect]
     Route: 048
     Dates: start: 20090101, end: 20111118
  5. CITALOPRAM [Concomitant]
     Route: 065
  6. IRBESARTAN + HYDROCHLOROTHIAZIDE [Suspect]
     Route: 048
     Dates: start: 20090101, end: 20111118
  7. ISOSORBIDE MONONITRATE [Suspect]
     Route: 048
     Dates: start: 20090101, end: 20111118
  8. CARVEDILOL [Suspect]
     Route: 048
     Dates: start: 20090101, end: 20111118
  9. LORAZEPAM [Concomitant]
     Indication: ANXIETY
     Route: 048
  10. REPAGLINIDE [Concomitant]
     Route: 048
  11. FERROUS SULFATE TAB [Concomitant]
     Route: 048

REACTIONS (2)
  - HYPERTENSIVE CRISIS [None]
  - DRUG INEFFECTIVE [None]
